FAERS Safety Report 16380610 (Version 1)
Quarter: 2019Q2

REPORT INFORMATION
  Report Type: Spontaneous
  Country: US (occurrence: US)
  Receive Date: 20190601
  Receipt Date: 20190601
  Transmission Date: 20190711
  Serious: No
  Sender: FDA-Public Use
  Company Number: US-TEVA-2019-US-1047564

PATIENT
  Sex: Female

DRUGS (3)
  1. BUPRENORPHINE. [Suspect]
     Active Substance: BUPRENORPHINE
     Indication: ARTHRITIS
     Dosage: FORM STRENGTH: 20 MCG/HR.
     Route: 062
     Dates: start: 20190420
  2. BUPRENORPHINE. [Suspect]
     Active Substance: BUPRENORPHINE
     Dosage: FORM STRENGTH:  10 MCG/HR
     Route: 062
     Dates: start: 20190306
  3. BUPRENORPHINE. [Suspect]
     Active Substance: BUPRENORPHINE
     Indication: PAIN
     Dosage: FORM STRENGTH: 15 MCG/HR,
     Route: 062
     Dates: start: 20190319

REACTIONS (4)
  - Therapeutic product effect decreased [Unknown]
  - Pain [Unknown]
  - Product use in unapproved indication [Unknown]
  - Product adhesion issue [Unknown]

NARRATIVE: CASE EVENT DATE: 2019
